FAERS Safety Report 12679178 (Version 2)
Quarter: 2017Q3

REPORT INFORMATION
  Report Type: Spontaneous
  Country: US (occurrence: US)
  Receive Date: 20160824
  Receipt Date: 20170911
  Transmission Date: 20171127
  Serious: No
  Sender: FDA-Public Use
  Company Number: US-TEVA-674429USA

PATIENT
  Sex: Female
  Weight: 68.1 kg

DRUGS (1)
  1. VENLAFAXINE [Suspect]
     Active Substance: VENLAFAXINE HYDROCHLORIDE
     Indication: DEPRESSION
     Route: 065

REACTIONS (4)
  - Depression [Unknown]
  - Drug ineffective [Unknown]
  - Product substitution issue [Unknown]
  - Malaise [Unknown]
